FAERS Safety Report 11636339 (Version 3)
Quarter: 2019Q3

REPORT INFORMATION
  Report Type: Report from Study
  Country: US (occurrence: US)
  Receive Date: 20151016
  Receipt Date: 20190906
  Transmission Date: 20191004
  Serious: Yes (Hospitalization)
  Sender: FDA-Public Use
  Company Number: US-ROCHE-1289592

PATIENT
  Age: 66 Year
  Sex: Female
  Weight: 135.9 kg

DRUGS (40)
  1. TRASTUZUMAB. [Suspect]
     Active Substance: TRASTUZUMAB
     Indication: INFLAMMATORY CARCINOMA OF THE BREAST
     Dosage: LOADING DOSE?DATE OF LAST DOSE PRIOR TO GAIT DISTURBANCE: 03/DEC/2013
     Route: 042
     Dates: start: 20130816
  2. LISINOPRIL. [Concomitant]
     Active Substance: LISINOPRIL
     Dosage: 27/JUL/2009
     Route: 048
  3. IMODIUM A-D [Concomitant]
     Active Substance: LOPERAMIDE HYDROCHLORIDE
     Dosage: AS REQUIRED FOR 7 DAYS.
     Route: 048
  4. CHLORTHALIDONE. [Concomitant]
     Active Substance: CHLORTHALIDONE
     Route: 048
  5. PROCHLORPERAZINE. [Concomitant]
     Active Substance: PROCHLORPERAZINE
     Indication: NAUSEA
     Route: 048
  6. IBUPROFEN. [Concomitant]
     Active Substance: IBUPROFEN
     Route: 048
  7. IMODIUM [Concomitant]
     Active Substance: LOPERAMIDE HYDROCHLORIDE
     Indication: DIARRHOEA
     Dosage: 2 - 4 MG
     Route: 048
  8. NYSTATIN. [Concomitant]
     Active Substance: NYSTATIN
     Route: 065
  9. INSULIN ASPART [Concomitant]
     Active Substance: INSULIN ASPART
     Dosage: 100/ML AS REQUIRED CARTIDGE
     Route: 065
  10. MICONAZOLE. [Concomitant]
     Active Substance: MICONAZOLE
     Route: 061
  11. MIRALAX [Concomitant]
     Active Substance: POLYETHYLENE GLYCOL 3350
     Dosage: HOLD IF LOOSE STOOLS
     Route: 048
  12. MIRTAZAPINE. [Concomitant]
     Active Substance: MIRTAZAPINE
     Route: 048
  13. TRASTUZUMAB. [Suspect]
     Active Substance: TRASTUZUMAB
     Dosage: MAINTENANCE DOSE
     Route: 042
     Dates: start: 20130906
  14. PACLITAXEL. [Suspect]
     Active Substance: PACLITAXEL
     Indication: INFLAMMATORY CARCINOMA OF THE BREAST
     Dosage: DATE OF LAST DOSE PRIOR TO GAIT DISTURBANCE: 03/DEC/2013
     Route: 042
     Dates: start: 20130816
  15. CIPROFLOXACIN. [Concomitant]
     Active Substance: CIPROFLOXACIN
     Route: 048
  16. LIDODERM [Concomitant]
     Active Substance: LIDOCAINE
     Indication: MUSCULOSKELETAL PAIN
     Route: 062
  17. ANASTROZOLE. [Concomitant]
     Active Substance: ANASTROZOLE
     Route: 048
  18. SENNOSIDES. [Concomitant]
     Active Substance: SENNOSIDES
     Dosage: HOLD IF LOOSE STOOLS
     Route: 048
  19. SERTRALINE [Concomitant]
     Active Substance: SERTRALINE HYDROCHLORIDE
     Route: 048
  20. PERTUZUMAB. [Suspect]
     Active Substance: PERTUZUMAB
     Indication: INFLAMMATORY CARCINOMA OF THE BREAST
     Dosage: LOADING DOSE
     Route: 042
     Dates: start: 20130816
  21. PERTUZUMAB. [Suspect]
     Active Substance: PERTUZUMAB
     Dosage: MAINTENANCE DOSE?DATE OF LAST DOSE PRIOR TO ACUTE KIDNEY INJURY: 01/OCT/2013
     Route: 042
     Dates: start: 20130906
  22. ZOLOFT [Concomitant]
     Active Substance: SERTRALINE HYDROCHLORIDE
     Route: 048
  23. VITAMIN D2 [Concomitant]
     Active Substance: ERGOCALCIFEROL
     Dosage: 50,000 UNITS
     Route: 065
  24. LACTULOSE. [Concomitant]
     Active Substance: LACTULOSE
     Dosage: 15 - 30 ML, DAILY
     Route: 048
  25. POTASSIUM CHLORIDE. [Concomitant]
     Active Substance: POTASSIUM CHLORIDE
     Dosage: REPLACEMENT SCALE
     Route: 042
  26. ONDANSETRON HCL [Concomitant]
     Active Substance: ONDANSETRON HYDROCHLORIDE
     Indication: NAUSEA
     Route: 048
  27. NPH [ISOPHANE INSULIN] [Concomitant]
     Active Substance: INSULIN NOS
     Dosage: 12 UNITS TWO TIME DAILY BEFORE BREAKFAST AND AT NIGHT.
     Route: 058
  28. METOPROLOL SUCCINATE. [Concomitant]
     Active Substance: METOPROLOL SUCCINATE
     Route: 048
  29. ACETAMINOPHEN. [Concomitant]
     Active Substance: ACETAMINOPHEN
     Indication: PAIN
     Route: 048
  30. AMLODIPINE [Concomitant]
     Active Substance: AMLODIPINE BESYLATE
     Dosage: HOLD IF SYSTOLIC BP { 100
     Route: 048
  31. PROCHLORPERAZINE. [Concomitant]
     Active Substance: PROCHLORPERAZINE
     Route: 048
  32. OXYBUTYNIN CHLORIDE. [Concomitant]
     Active Substance: OXYBUTYNIN CHLORIDE
     Dosage: (5 MG/ML SYRUP: 2.5 ML)
     Route: 048
  33. PRAVASTATIN. [Concomitant]
     Active Substance: PRAVASTATIN
     Dosage: BEDTIME
     Route: 048
  34. FLUCONAZOLE. [Concomitant]
     Active Substance: FLUCONAZOLE
     Route: 048
  35. TRAZODONE [Concomitant]
     Active Substance: TRAZODONE HYDROCHLORIDE
     Indication: INSOMNIA
     Dosage: BEDTIME PRN
     Route: 048
  36. DOCUSATE SODIUM. [Concomitant]
     Active Substance: DOCUSATE SODIUM
     Dosage: HOLD IF LOOSE STOOLS
     Route: 048
  37. ENOXAPARIN [Concomitant]
     Active Substance: ENOXAPARIN
     Route: 058
  38. VITAMIN B COMPLEX [Concomitant]
     Active Substance: CYANOCOBALAMIN\DEXPANTHENOL\NIACINAMIDE\PYRIDOXINE HYDROCHLORIDE\RIBOFLAVIN 5^-PHOSPHATE SODIUM\THIAMINE HYDROCHLORIDE\VITAMIN B COMPLEX
     Dosage: 1 TAB DAILY
     Route: 048
  39. LASIX [Concomitant]
     Active Substance: FUROSEMIDE
     Dosage: HOLD IF SYSTOLIC BP {100
     Route: 048
  40. OMEPRAZOLE. [Concomitant]
     Active Substance: OMEPRAZOLE
     Route: 048

REACTIONS (4)
  - Fatigue [Recovered/Resolved]
  - Nail infection [Recovered/Resolved]
  - Acute kidney injury [Recovered/Resolved]
  - Gait disturbance [Recovered/Resolved]

NARRATIVE: CASE EVENT DATE: 20131008
